FAERS Safety Report 5671681-X (Version None)
Quarter: 2008Q2

REPORT INFORMATION
  Report Type: 
  Country: None (occurrence: None)
  Receive Date: 20080229
  Receipt Date: 20071221
  Transmission Date: 20081010
  Serious: No
  Sender: FDA-Public Use
  Company Number: PHEH2007US15169

PATIENT
  Age: 57 Year
  Sex: Male

DRUGS (5)
  1. EXJADE [Suspect]
     Indication: SICKLE CELL ANAEMIA
     Dosage: 1500MG, QD, ORAL
     Route: 048
     Dates: start: 20071011
  2. PLAVIX [Concomitant]
  3. LEVOTHYROXINE SODIUM [Concomitant]
  4. ATENOLOL [Concomitant]
  5. MIRTAZAPINE [Concomitant]

REACTIONS (1)
  - EPISTAXIS [None]
